FAERS Safety Report 6554489-2 (Version None)
Quarter: 2010Q1

REPORT INFORMATION
  Report Type: 
  Country: None (occurrence: None)
  Receive Date: 20100127
  Receipt Date: 20100118
  Transmission Date: 20100710
  Serious: Yes (Hospitalization)
  Sender: FDA-Public Use
  Company Number: IT-WYE-H13087310

PATIENT
  Age: 82 Year
  Sex: Male

DRUGS (10)
  1. CORDARONE [Suspect]
     Route: 048
     Dates: start: 20060101
  2. LASIX [Concomitant]
  3. ASPIRIN [Concomitant]
  4. EUTIROX [Concomitant]
  5. DELTACORTENE [Concomitant]
  6. CACIT [Concomitant]
  7. NITRO-DUR [Concomitant]
  8. ANTRA [Concomitant]
  9. LEVOFLOXACIN [Interacting]
     Indication: URINARY TRACT INFECTION
     Route: 048
     Dates: start: 20100107, end: 20100112
  10. ZYLORIC [Concomitant]

REACTIONS (2)
  - CARDIAC FAILURE [None]
  - DRUG INTERACTION [None]
